FAERS Safety Report 8593425 (Version 3)
Quarter: 2013Q4

REPORT INFORMATION
  Report Type: Spontaneous
  Country: US (occurrence: US)
  Receive Date: 20120604
  Receipt Date: 20131129
  Transmission Date: 20140711
  Serious: Yes (Hospitalization)
  Sender: FDA-Public Use
  Company Number: US-ASTRAZENECA-2012SE34950

PATIENT
  Age: 67 Year
  Sex: Female

DRUGS (19)
  1. NEXIUM [Suspect]
     Route: 048
     Dates: start: 2006, end: 2010
  2. NEXIUM [Suspect]
     Route: 048
     Dates: start: 20110224
  3. NEXIUM [Suspect]
     Route: 048
     Dates: start: 201205
  4. PROTONIX/PANTOPRAZOLE [Concomitant]
     Dates: start: 2010
  5. CELEBREX [Concomitant]
     Indication: ARTHRITIS
  6. LORATAB [Concomitant]
     Indication: BONE PAIN
  7. PROGRAF [Concomitant]
     Dosage: 4 MG 4 CAPSULES EVENING DAILY AND 3 MG 3 CAPSULES MORNING DAILY
     Route: 048
     Dates: start: 201205
  8. HYDRALAZINE [Concomitant]
     Route: 048
     Dates: start: 201205
  9. CARVEDILOL [Concomitant]
     Route: 048
  10. ACETAMINOPHEN-HYDROCODONE [Concomitant]
     Dosage: 500 MG-5 MG ORAL TABLET 1 TABLET, ORAL, EVERY 4 HOURS
     Route: 048
     Dates: start: 201205
  11. TUMS [Concomitant]
     Dosage: 1000 MG ORAL TABLET, CHEWABLE, THREE TIMES DAILY WITH MEALS
     Route: 048
     Dates: start: 201205
  12. TRAZODONE [Concomitant]
     Indication: INSOMNIA
     Dosage: 150 MG ORAL TABLET, 1 TABLET, ORAL, NIGHTLY (BEDTIME)
     Route: 048
     Dates: start: 201205
  13. PREDNISONE [Concomitant]
     Dosage: 5 MILLIGRAM, DAILY ALTERNATES 5MG AND 7.5 MG DAILY
     Dates: start: 201205
  14. PRAVASTATIN [Concomitant]
     Dosage: 80 MG ORAL TABLET 1 TABLET, ORAL, NIGHTLY (BEDTIME)
     Dates: start: 201205
  15. MYFORTIC [Concomitant]
     Route: 048
     Dates: start: 201205
  16. MYFORTIC [Concomitant]
     Dosage: TAKE 2 CAPSULES IN THE MORNING AND 3 CAPSULES IN THE EVENING
     Route: 048
  17. DILTIA XT [Concomitant]
     Route: 048
     Dates: start: 201205
  18. AMLODIPINE [Concomitant]
     Route: 048
     Dates: start: 201205
  19. PLAVIX [Concomitant]
     Route: 048
     Dates: start: 201205

REACTIONS (13)
  - Dehydration [Unknown]
  - Chest pain [Unknown]
  - Osteoporosis [Unknown]
  - Multiple fractures [Unknown]
  - Rib fracture [Unknown]
  - Fractured coccyx [Unknown]
  - Back pain [Unknown]
  - Bone pain [Unknown]
  - Calcium deficiency [Unknown]
  - Cataract [Unknown]
  - Vitamin D deficiency [Unknown]
  - Exostosis [Unknown]
  - Arthralgia [Unknown]
